FAERS Safety Report 17356635 (Version 1)
Quarter: 2020Q1

REPORT INFORMATION
  Report Type: Spontaneous
  Country: US (occurrence: US)
  Receive Date: 20200131
  Receipt Date: 20200131
  Transmission Date: 20200409
  Serious: Yes (Hospitalization, Other)
  Sender: FDA-Public Use
  Company Number: US-ELI_LILLY_AND_COMPANY-US202001009464

PATIENT
  Age: 81 Year
  Sex: Female

DRUGS (1)
  1. HUMULIN 70/30 [Suspect]
     Active Substance: INSULIN HUMAN
     Indication: TYPE 2 DIABETES MELLITUS
     Dosage: UNK, PRN
     Route: 058
     Dates: start: 2015

REACTIONS (5)
  - Pericardial effusion [Unknown]
  - Chronic obstructive pulmonary disease [Unknown]
  - Cellulitis [Not Recovered/Not Resolved]
  - Lymphoedema [Unknown]
  - Cardiac failure congestive [Unknown]
